FAERS Safety Report 8153649-7 (Version None)
Quarter: 2012Q1

REPORT INFORMATION
  Report Type: 
  Country: None (occurrence: None)
  Receive Date: 20120221
  Receipt Date: 20120217
  Transmission Date: 20120608
  Serious: Yes (Life-Threatening)
  Sender: FDA-Public Use
  Company Number: FR-JNJFOC-20120208983

PATIENT
  Sex: Male

DRUGS (6)
  1. LANTUS [Suspect]
     Indication: DIABETES MELLITUS
     Route: 058
  2. DURAGESIC-100 [Suspect]
     Indication: PAIN
     Route: 062
     Dates: end: 20100330
  3. CREON [Suspect]
     Indication: PANCREATITIS
     Route: 048
  4. NOVORAPID [Suspect]
     Indication: DIABETES MELLITUS
     Route: 058
  5. ACTIQ [Suspect]
     Indication: PAIN
     Route: 048
     Dates: end: 20100330
  6. ASPIRIN [Suspect]
     Indication: PLATELET AGGREGATION INHIBITION
     Route: 048

REACTIONS (3)
  - OVERDOSE [None]
  - COMA [None]
  - PNEUMONIA ASPIRATION [None]
